FAERS Safety Report 25471564 (Version 6)
Quarter: 2025Q4

REPORT INFORMATION
  Report Type: Spontaneous
  Country: US (occurrence: US)
  Receive Date: 20250624
  Receipt Date: 20251028
  Transmission Date: 20260117
  Serious: Yes (Hospitalization)
  Sender: SYNDAX
  Company Number: US-SYNDAX PHARMACEUTICALS, INC.-2025US000501

PATIENT
  Sex: Male
  Weight: 10.898 kg

DRUGS (2)
  1. REVUFORJ [Suspect]
     Active Substance: REVUMENIB CITRATE
     Indication: Product used for unknown indication
     Dosage: 75 MILLIGRAM, BID
  2. REVUFORJ [Suspect]
     Active Substance: REVUMENIB CITRATE
     Dosage: 75 MILLIGRAM, BID
     Route: 048

REACTIONS (15)
  - Stress fracture [Unknown]
  - Balance disorder [Unknown]
  - Gastrointestinal tube insertion [Unknown]
  - Product dose omission issue [Unknown]
  - White blood cell count decreased [Unknown]
  - Neutrophil count decreased [Unknown]
  - Diarrhoea [Unknown]
  - Appetite disorder [Unknown]
  - Personality disorder [Unknown]
  - Decreased appetite [Unknown]
  - Hypertension [Unknown]
  - Red blood cell count decreased [Unknown]
  - Electrocardiogram abnormal [Unknown]
  - Irritability [Unknown]
  - Seasonal allergy [Unknown]
